FAERS Safety Report 4485081-1 (Version None)
Quarter: 2004Q4

REPORT INFORMATION
  Report Type: 
  Country: None (occurrence: None)
  Receive Date: 20041021
  Receipt Date: 20041021
  Transmission Date: 20050328
  Serious: Yes (Hospitalization)
  Sender: FDA-Public Use
  Company Number: None

PATIENT
  Age: 8 Year
  Sex: Female
  Weight: 36.2878 kg

DRUGS (4)
  1. PAXIL [Suspect]
     Indication: ANXIETY
     Dosage: 10 MG 1 TIME DAILY ORAL
     Route: 048
     Dates: start: 20020501, end: 20020815
  2. PAXIL [Suspect]
     Indication: DEPRESSION
     Dosage: 10 MG 1 TIME DAILY ORAL
     Route: 048
     Dates: start: 20020501, end: 20020815
  3. PAXIL [Suspect]
     Indication: ANXIETY
     Dosage: 15 MG 1 TIME DAILY ORAL
     Route: 048
     Dates: start: 20020816, end: 20021002
  4. PAXIL [Suspect]
     Indication: DEPRESSION
     Dosage: 15 MG 1 TIME DAILY ORAL
     Route: 048
     Dates: start: 20020816, end: 20021002

REACTIONS (9)
  - ABNORMAL BEHAVIOUR [None]
  - AGGRESSION [None]
  - ANXIETY [None]
  - IMPULSIVE BEHAVIOUR [None]
  - IRRITABILITY [None]
  - MANIA [None]
  - PANIC ATTACK [None]
  - SUICIDAL IDEATION [None]
  - SUICIDE ATTEMPT [None]
